FAERS Safety Report 8320301-4 (Version None)
Quarter: 2012Q2

REPORT INFORMATION
  Report Type: 
  Country: None (occurrence: None)
  Receive Date: 20120430
  Receipt Date: 20120425
  Transmission Date: 20120825
  Serious: No
  Sender: FDA-Public Use
  Company Number: US-PFIZER INC-2012103475

PATIENT
  Sex: Female

DRUGS (1)
  1. SUTENT [Suspect]
     Indication: ABDOMINAL NEOPLASM
     Dosage: 25 MG, 1X/DAY

REACTIONS (2)
  - DISEASE PROGRESSION [None]
  - ABDOMINAL NEOPLASM [None]
